FAERS Safety Report 8067608-6 (Version None)
Quarter: 2012Q1

REPORT INFORMATION
  Report Type: 
  Country: None (occurrence: None)
  Receive Date: 20120124
  Receipt Date: 20120116
  Transmission Date: 20120608
  Serious: Yes (Other)
  Sender: FDA-Public Use
  Company Number: US-US-EMD SERONO, INC.-7082202

PATIENT
  Sex: Female

DRUGS (3)
  1. REBIF [Suspect]
     Indication: PRODUCT USED FOR UNKNOWN INDICATION
     Route: 058
     Dates: start: 20090713, end: 20111201
  2. MICARDIS HCT [Concomitant]
     Indication: HEART RATE INCREASED
     Dates: start: 20070101
  3. GABAPENTIN [Concomitant]

REACTIONS (8)
  - URINARY RETENTION [None]
  - MYOCARDIAL INFARCTION [None]
  - POLLAKIURIA [None]
  - FULL BLOOD COUNT ABNORMAL [None]
  - INJECTION SITE REACTION [None]
  - INFLUENZA LIKE ILLNESS [None]
  - COORDINATION ABNORMAL [None]
  - HYPOVITAMINOSIS [None]
